FAERS Safety Report 11865264 (Version 4)
Quarter: 2016Q1

REPORT INFORMATION
  Report Type: Report from Study
  Country: BE (occurrence: BE)
  Receive Date: 20151223
  Receipt Date: 20160115
  Transmission Date: 20160526
  Serious: Yes (Hospitalization)
  Sender: FDA-Public Use
  Company Number: BE-PFIZER INC-2015448883

PATIENT
  Age: 5 Month
  Sex: Male
  Weight: 6.9 kg

DRUGS (5)
  1. TOPAMAX [Concomitant]
     Active Substance: TOPIRAMATE
     Indication: SEIZURE
     Dosage: 25 MG, 2X/DAY
     Route: 048
     Dates: start: 20151211
  2. KEPPRA [Concomitant]
     Active Substance: LEVETIRACETAM
     Indication: SEIZURE
     Dosage: 180 MG, 2X/DAY
     Route: 048
     Dates: start: 20151211
  3. PREGABALIN. [Suspect]
     Active Substance: PREGABALIN
     Indication: SEIZURE
     Dosage: 0.6 ML, 3X/DAY
     Route: 048
     Dates: start: 20151211, end: 20151223
  4. PREGABALIN. [Suspect]
     Active Substance: PREGABALIN
     Dosage: 0.3 ML, 3X/DAY
     Route: 048
     Dates: start: 20151224, end: 20151231
  5. TEGRETOL [Suspect]
     Active Substance: CARBAMAZEPINE
     Indication: SEIZURE
     Dosage: 3.7 ML, 2X/DAY
     Route: 048
     Dates: start: 20151211

REACTIONS (2)
  - Epilepsy [Recovered/Resolved]
  - Cyanosis [Recovered/Resolved]

NARRATIVE: CASE EVENT DATE: 20151214
